FAERS Safety Report 10561824 (Version 22)
Quarter: 2017Q2

REPORT INFORMATION
  Report Type: Report from Study
  Country: NL (occurrence: NL)
  Receive Date: 20141104
  Receipt Date: 20170421
  Transmission Date: 20170829
  Serious: Yes (Death, Hospitalization)
  Sender: FDA-Public Use
  Company Number: NL-ROCHE-1484147

PATIENT
  Age: 41 Year
  Sex: Male
  Weight: 85 kg

DRUGS (9)
  1. ALLOPURINOL. [Concomitant]
     Active Substance: ALLOPURINOL
     Indication: PROPHYLAXIS
     Route: 065
     Dates: start: 20141015, end: 20141017
  2. ALLOPURINOL. [Concomitant]
     Active Substance: ALLOPURINOL
     Indication: BLOOD URIC ACID INCREASED
  3. BECLOMETHASONE [Concomitant]
     Active Substance: BECLOMETHASONE
     Route: 065
     Dates: start: 20151008, end: 20151022
  4. CODEINE [Concomitant]
     Active Substance: CODEINE
     Indication: COUGH
     Route: 065
     Dates: start: 20141118
  5. PANTOPRAZOL [Concomitant]
     Active Substance: PANTOPRAZOLE SODIUM
     Route: 065
     Dates: start: 20151019, end: 20151022
  6. BENDAMUSTINE [Suspect]
     Active Substance: BENDAMUSTINE
     Indication: NON-HODGKIN^S LYMPHOMA UNSPECIFIED HISTOLOGY INDOLENT
     Dosage: 90 MG/M2/DAY DAYS 2 AND 3 OF CYCLE 1 AND ON DAYS 1 AND 2 OF CYCLES 2-6 OF EACH 28-DAY CYCLE AS PER P
     Route: 042
     Dates: start: 20140918
  7. NEULASTA [Concomitant]
     Active Substance: PEGFILGRASTIM
     Indication: NEUTROPENIA
     Dosage: NEUTROPENIA INTERMITTENT
     Route: 065
     Dates: start: 20141124
  8. CODEINE [Concomitant]
     Active Substance: CODEINE
     Indication: ERYSIPELAS
     Route: 065
     Dates: start: 20150705
  9. OBINUTUZUMAB [Suspect]
     Active Substance: OBINUTUZUMAB
     Indication: NON-HODGKIN^S LYMPHOMA UNSPECIFIED HISTOLOGY INDOLENT
     Dosage: FREQUENCY DAYS 1, 8, AND 15 OF CYCLE 1 AND DAY 1 OF CYCLES 2-6 (28-DAY CYCLES); AND THEN EVERY 2 MON
     Route: 042
     Dates: start: 20140918

REACTIONS (3)
  - Pyrexia [Recovered/Resolved]
  - Febrile neutropenia [Recovered/Resolved]
  - Coxsackie myocarditis [Fatal]

NARRATIVE: CASE EVENT DATE: 20141028
